FAERS Safety Report 8492681-0 (Version None)
Quarter: 2012Q3

REPORT INFORMATION
  Report Type: 
  Country: None (occurrence: None)
  Receive Date: 20120706
  Receipt Date: 20120702
  Transmission Date: 20120928
  Serious: Yes (Other)
  Sender: FDA-Public Use
  Company Number: US-PFIZER INC-2012143985

PATIENT
  Sex: Female
  Weight: 53.061 kg

DRUGS (7)
  1. PRISTIQ [Suspect]
     Indication: ANXIETY
     Dosage: 50 MG, 1X/DAY
     Route: 048
     Dates: start: 20120521
  2. TOPAMAX [Concomitant]
     Dosage: UNK
  3. PROZAC [Concomitant]
     Dosage: UNK
  4. CYMBALTA [Concomitant]
     Dosage: UNK
  5. PRISTIQ [Suspect]
     Indication: DEPRESSION
  6. LEVOXYL [Concomitant]
     Indication: HYPOTHYROIDISM
     Dosage: UNK
  7. KLONOPIN [Concomitant]
     Dosage: UNK

REACTIONS (11)
  - DYSPNOEA [None]
  - ABDOMINAL DISCOMFORT [None]
  - ABNORMAL DREAMS [None]
  - SUICIDAL IDEATION [None]
  - SOMNOLENCE [None]
  - DRUG INEFFECTIVE [None]
  - FATIGUE [None]
  - MUSCLE SPASMS [None]
  - MALAISE [None]
  - DEPRESSION [None]
  - FEELING ABNORMAL [None]
